FAERS Safety Report 9341908 (Version 2)
Quarter: 2013Q2

REPORT INFORMATION
  Report Type: Spontaneous
  Country: JP (occurrence: JP)
  Receive Date: 20130611
  Receipt Date: 20130625
  Transmission Date: 20140414
  Serious: No
  Sender: FDA-Public Use
  Company Number: JP-SUCAMPO PHARMA AMERICAS, INC-SPI201300394

PATIENT
  Age: 76 Year
  Sex: Female

DRUGS (6)
  1. AMITIZA [Suspect]
     Dosage: 24 MCG, UNK
     Route: 048
     Dates: start: 201304, end: 20130529
  2. DEPAS [Concomitant]
     Route: 048
  3. ONEALFA [Concomitant]
     Route: 048
  4. ACTONEL [Concomitant]
     Route: 048
  5. CELECOX [Concomitant]
     Route: 048
  6. CYTOTEC [Concomitant]
     Route: 048

REACTIONS (1)
  - Chest discomfort [Recovered/Resolved]
